FAERS Safety Report 23286345 (Version 1)
Quarter: 2023Q4

REPORT INFORMATION
  Report Type: Spontaneous
  Country: FR (occurrence: FR)
  Receive Date: 20231212
  Receipt Date: 20231212
  Transmission Date: 20240110
  Serious: Yes (Life-Threatening, Hospitalization, Other)
  Sender: FDA-Public Use
  Company Number: FR-GRANULES-FR-2023GRALIT00345

PATIENT
  Age: 19 Year
  Sex: Female

DRUGS (1)
  1. VENLAFAXINE HYDROCHLORIDE [Suspect]
     Active Substance: VENLAFAXINE HYDROCHLORIDE
     Indication: Product used for unknown indication
     Route: 065

REACTIONS (12)
  - Cardiac failure [Recovered/Resolved with Sequelae]
  - Hepatic cytolysis [Unknown]
  - Toxicity to various agents [Unknown]
  - Ejection fraction decreased [Recovering/Resolving]
  - Coma [Unknown]
  - Seizure [Unknown]
  - Hypotension [Unknown]
  - Tachycardia [Unknown]
  - Mydriasis [Unknown]
  - Stress cardiomyopathy [Recovering/Resolving]
  - Intentional product misuse [Unknown]
  - Overdose [Unknown]
